FAERS Safety Report 5144988-2 (Version None)
Quarter: 2006Q4

REPORT INFORMATION
  Report Type: 
  Country: None (occurrence: None)
  Receive Date: 20061107
  Receipt Date: 20060705
  Transmission Date: 20070319
  Serious: Yes (Other)
  Sender: FDA-Public Use
  Company Number: US-BAYER-200614428BWH

PATIENT
  Sex: Female

DRUGS (2)
  1. TRASYLOL [Suspect]
     Indication: CARDIAC OPERATION
     Dosage: UNIT DOSE: 2000000 KIU
     Route: 042
  2. VANCOMYCIN [Suspect]
     Indication: DRUG USE FOR UNKNOWN INDICATION
     Route: 042

REACTIONS (1)
  - OTOTOXICITY [None]
